FAERS Safety Report 5763110-2 (Version None)
Quarter: 2008Q2

REPORT INFORMATION
  Report Type: 
  Country: None (occurrence: None)
  Receive Date: 20080609
  Receipt Date: 20080528
  Transmission Date: 20081010
  Serious: Yes (Hospitalization, Other)
  Sender: FDA-Public Use
  Company Number: US-PFIZER INC-2008044963

PATIENT
  Age: 69 Year
  Sex: Female
  Weight: 59 kg

DRUGS (1)
  1. SU-011,248 [Suspect]
     Indication: GLIOBLASTOMA MULTIFORME
     Route: 048
     Dates: start: 20080128, end: 20080406

REACTIONS (7)
  - CEREBRAL ISCHAEMIA [None]
  - GAIT DISTURBANCE [None]
  - HAEMOGLOBIN [None]
  - MENTAL STATUS CHANGES [None]
  - MUSCULAR WEAKNESS [None]
  - PLATELET COUNT [None]
  - URINARY TRACT INFECTION [None]
